FAERS Safety Report 7925041 (Version 2)
Quarter: 2013Q4

REPORT INFORMATION
  Report Type: Report from Study
  Country: US (occurrence: US)
  Receive Date: 20110502
  Receipt Date: 20131212
  Transmission Date: 20140711
  Serious: Yes (Life-Threatening, Hospitalization, Other)
  Sender: FDA-Public Use
  Company Number: US-ASTRAZENECA-2010SE15506

PATIENT
  Age: 61 Year
  Sex: Male
  Weight: 95.3 kg

DRUGS (14)
  1. NEXIUM [Suspect]
     Indication: HIATUS HERNIA
     Route: 048
  2. NEXIUM [Suspect]
     Indication: HELICOBACTER INFECTION
     Route: 048
  3. NEXIUM [Suspect]
     Indication: GASTRIC DISORDER
     Route: 048
  4. NEXIUM [Suspect]
     Indication: HIATUS HERNIA
     Route: 048
     Dates: start: 2003
  5. NEXIUM [Suspect]
     Indication: HELICOBACTER INFECTION
     Route: 048
     Dates: start: 2003
  6. NEXIUM [Suspect]
     Indication: GASTRIC DISORDER
     Route: 048
     Dates: start: 2003
  7. METHADONE [Suspect]
     Route: 065
  8. VITAMIN D [Concomitant]
     Indication: ARTHRITIS
     Route: 048
     Dates: start: 2008
  9. NEURONTIN [Concomitant]
     Indication: NEUROPATHY PERIPHERAL
     Route: 048
     Dates: start: 2003
  10. FE-C IRON [Concomitant]
     Indication: ANAEMIA
     Dosage: UNKNOWN DAILY
     Route: 048
     Dates: start: 2013
  11. METFORMIN [Concomitant]
     Indication: DIABETES MELLITUS
     Route: 048
     Dates: start: 2003
  12. B12 INJECTIONS [Concomitant]
     Indication: ANAEMIA
     Dosage: 1 ML/1000 MCG MONTH
     Route: 050
     Dates: start: 2003
  13. ZOLOFT [Concomitant]
     Indication: ANXIETY
     Route: 048
     Dates: start: 2000
  14. ZOLOFT [Concomitant]
     Indication: SUICIDAL IDEATION
     Route: 048
     Dates: start: 2000

REACTIONS (26)
  - Acute respiratory distress syndrome [Unknown]
  - Apparent death [Unknown]
  - Haematemesis [Unknown]
  - Haematochezia [Unknown]
  - Ulcer haemorrhage [Unknown]
  - Organising pneumonia [Unknown]
  - Vascular occlusion [Unknown]
  - Rheumatoid arthritis [Unknown]
  - Drug effect increased [Unknown]
  - Gastrointestinal haemorrhage [Unknown]
  - Gastrooesophageal reflux disease [Unknown]
  - Abdominal discomfort [Unknown]
  - Asbestosis [Unknown]
  - Silicosis [Unknown]
  - Emphysema [Unknown]
  - Neuropathy peripheral [Unknown]
  - Diabetes mellitus [Unknown]
  - Restless legs syndrome [Unknown]
  - Lung disorder [Unknown]
  - Anaemia [Unknown]
  - Sleep disorder due to general medical condition, insomnia type [Unknown]
  - Oropharyngeal pain [Unknown]
  - Adverse event [Unknown]
  - Drug ineffective [Unknown]
  - Off label use [Unknown]
  - Drug dose omission [Unknown]
